FAERS Safety Report 4536425-3 (Version None)
Quarter: 2004Q4

REPORT INFORMATION
  Report Type: 
  Country: None (occurrence: None)
  Receive Date: 20041223
  Receipt Date: 20041008
  Transmission Date: 20050328
  Serious: Yes (Hospitalization)
  Sender: FDA-Public Use
  Company Number: US-GLAXOSMITHKLINE-A0529102A

PATIENT
  Age: 79 Year
  Sex: Male

DRUGS (3)
  1. FLONASE [Suspect]
     Indication: DRUG USE FOR UNKNOWN INDICATION
     Dosage: 1SPR TWICE PER DAY
     Route: 045
     Dates: start: 20040924
  2. ZOCOR [Concomitant]
  3. PRILOSEC [Concomitant]

REACTIONS (1)
  - EPISTAXIS [None]
